FAERS Safety Report 4378032-1 (Version None)
Quarter: 2004Q2

REPORT INFORMATION
  Report Type: 
  Country: None (occurrence: None)
  Receive Date: 20040609
  Receipt Date: 20040527
  Transmission Date: 20050107
  Serious: Yes (Hospitalization)
  Sender: FDA-Public Use
  Company Number: 2004035776

PATIENT
  Age: 22 Year
  Sex: Male

DRUGS (1)
  1. NEURONTIN [Suspect]
     Indication: EPILEPSY
     Dosage: 1800 MG (600 MG, 3 IN 1 D)
     Dates: start: 20040501

REACTIONS (1)
  - RENAL TUBULAR DISORDER [None]
